FAERS Safety Report 8387022-3 (Version None)
Quarter: 2012Q2

REPORT INFORMATION
  Report Type: 
  Country: None (occurrence: None)
  Receive Date: 20120525
  Receipt Date: 20120518
  Transmission Date: 20120825
  Serious: Yes (Hospitalization, Other)
  Sender: FDA-Public Use
  Company Number: US-ACTELION-A-US2011-45969

PATIENT

DRUGS (4)
  1. CALCIUM CHANNEL BLOCKERS [Concomitant]
  2. DIGOXIN [Concomitant]
  3. LOVENOX [Concomitant]
  4. TRACLEER [Suspect]
     Indication: PULMONARY ARTERIAL HYPERTENSION
     Dosage: UNK
     Route: 048
     Dates: start: 20040105

REACTIONS (7)
  - ROAD TRAFFIC ACCIDENT [None]
  - MYOCARDIAL INFARCTION [None]
  - PARAESTHESIA [None]
  - VOCAL CORD DISORDER [None]
  - LIMB CRUSHING INJURY [None]
  - ENDOTRACHEAL INTUBATION COMPLICATION [None]
  - DYSPHONIA [None]
